FAERS Safety Report 6870668-9 (Version None)
Quarter: 2010Q3

REPORT INFORMATION
  Report Type: 
  Country: None (occurrence: None)
  Receive Date: 20100721
  Receipt Date: 20100628
  Transmission Date: 20110219
  Serious: Yes (Other)
  Sender: FDA-Public Use
  Company Number: JP-SOLVAY-00310001602

PATIENT
  Age: 41 Year
  Sex: Female

DRUGS (20)
  1. LUVOX [Suspect]
     Indication: OBSESSIVE-COMPULSIVE PERSONALITY DISORDER
     Dosage: SEE IMAGE
     Route: 048
     Dates: start: 20050624, end: 20051104
  2. LUVOX [Suspect]
     Indication: OBSESSIVE-COMPULSIVE PERSONALITY DISORDER
     Dosage: SEE IMAGE
     Route: 048
     Dates: start: 20051129, end: 20051129
  3. LUVOX [Suspect]
     Indication: OBSESSIVE-COMPULSIVE PERSONALITY DISORDER
     Dosage: SEE IMAGE
     Route: 048
     Dates: start: 20051217, end: 20060106
  4. LUVOX [Suspect]
     Indication: OBSESSIVE-COMPULSIVE PERSONALITY DISORDER
     Dosage: SEE IMAGE
     Route: 048
     Dates: start: 20060404, end: 20070203
  5. LUVOX [Suspect]
     Indication: OBSESSIVE-COMPULSIVE PERSONALITY DISORDER
     Dosage: SEE IMAGE
     Route: 048
     Dates: start: 20070305, end: 20070925
  6. LUVOX [Suspect]
     Indication: OBSESSIVE-COMPULSIVE PERSONALITY DISORDER
     Dosage: SEE IMAGE
     Route: 048
     Dates: start: 20071010, end: 20071010
  7. LUVOX [Suspect]
     Indication: OBSESSIVE-COMPULSIVE PERSONALITY DISORDER
     Dosage: SEE IMAGE
     Route: 048
     Dates: start: 20071106, end: 20071106
  8. LUVOX [Suspect]
     Indication: OBSESSIVE-COMPULSIVE PERSONALITY DISORDER
     Dosage: SEE IMAGE
     Route: 048
     Dates: start: 20071221, end: 20091113
  9. LUVOX [Suspect]
     Indication: OBSESSIVE-COMPULSIVE PERSONALITY DISORDER
     Dosage: SEE IMAGE
     Route: 048
     Dates: start: 20070305, end: 20091113
  10. LUVOX [Suspect]
     Indication: OBSESSIVE-COMPULSIVE PERSONALITY DISORDER
     Dosage: SEE IMAGE
     Route: 048
     Dates: start: 20091204, end: 20100315
  11. LUVOX [Suspect]
     Indication: OBSESSIVE-COMPULSIVE PERSONALITY DISORDER
     Dosage: SEE IMAGE
     Route: 048
     Dates: start: 20100403, end: 20100403
  12. LUVOX [Suspect]
     Indication: OBSESSIVE-COMPULSIVE PERSONALITY DISORDER
     Dosage: SEE IMAGE
     Route: 048
     Dates: start: 20091204, end: 20100423
  13. LUVOX [Suspect]
     Indication: OBSESSIVE-COMPULSIVE PERSONALITY DISORDER
     Dosage: SEE IMAGE
     Route: 048
     Dates: start: 20100401, end: 20100423
  14. DEPAS (ETIZOLAM) [Suspect]
     Indication: OBSESSIVE-COMPULSIVE PERSONALITY DISORDER
     Dosage: SEE IMAGE
     Route: 048
     Dates: start: 20080118, end: 20091113
  15. DEPAS (ETIZOLAM) [Suspect]
     Indication: OBSESSIVE-COMPULSIVE PERSONALITY DISORDER
     Dosage: SEE IMAGE
     Route: 048
     Dates: start: 20091204, end: 20091212
  16. DEPAS (ETIZOLAM) [Suspect]
     Indication: OBSESSIVE-COMPULSIVE PERSONALITY DISORDER
     Dosage: SEE IMAGE
     Route: 048
     Dates: start: 20100109, end: 20100109
  17. DEPAS (ETIZOLAM) [Suspect]
     Indication: OBSESSIVE-COMPULSIVE PERSONALITY DISORDER
     Dosage: SEE IMAGE
     Route: 048
     Dates: start: 20100210, end: 20100315
  18. DEPAS (ETIZOLAM) [Suspect]
     Indication: OBSESSIVE-COMPULSIVE PERSONALITY DISORDER
     Dosage: SEE IMAGE
     Route: 048
     Dates: start: 20100403, end: 20100423
  19. DEPAS (ETIZOLAM) [Suspect]
     Indication: OBSESSIVE-COMPULSIVE PERSONALITY DISORDER
     Dosage: SEE IMAGE
     Route: 048
     Dates: start: 20100612
  20. SEPAZON (CLOXAZOLAM) [Concomitant]

REACTIONS (8)
  - FATIGUE [None]
  - HAEMATOCRIT DECREASED [None]
  - HAEMOGLOBIN DECREASED [None]
  - INTESTINAL HAEMORRHAGE [None]
  - MELAENA [None]
  - PLATELET COUNT DECREASED [None]
  - RED BLOOD CELL COUNT DECREASED [None]
  - WHITE BLOOD CELL COUNT DECREASED [None]
